FAERS Safety Report 16876359 (Version 2)
Quarter: 2019Q4

REPORT INFORMATION
  Report Type: Spontaneous
  Country: US (occurrence: US)
  Receive Date: 20191002
  Receipt Date: 20191204
  Transmission Date: 20200122
  Serious: Yes (Hospitalization)
  Sender: FDA-Public Use
  Company Number: US-GW PHARMA-201909USGW3221

PATIENT

DRUGS (2)
  1. EPIDIOLEX [Suspect]
     Active Substance: CANNABIDIOL
     Dosage: 750 MILLIGRAM, BID
     Route: 048
     Dates: start: 20190708, end: 20190822
  2. EPIDIOLEX [Suspect]
     Active Substance: CANNABIDIOL
     Indication: PRODUCT USED FOR UNKNOWN INDICATION
     Dosage: 150 MILLIGRAM, BID
     Route: 048
     Dates: start: 201903, end: 20190708

REACTIONS (4)
  - Pneumonia [Unknown]
  - Decreased interest [Unknown]
  - Somnolence [Unknown]
  - Lethargy [Unknown]

NARRATIVE: CASE EVENT DATE: 2019
